FAERS Safety Report 25708438 (Version 1)
Quarter: 2025Q3

REPORT INFORMATION
  Report Type: Spontaneous
  Country: US (occurrence: US)
  Receive Date: 20250821
  Receipt Date: 20250821
  Transmission Date: 20251021
  Serious: No
  Sender: STRIDES
  Company Number: US-STRIDES ARCOLAB LIMITED-2025SP008735

PATIENT

DRUGS (5)
  1. TACROLIMUS [Suspect]
     Active Substance: TACROLIMUS
     Indication: Prophylaxis against transplant rejection
     Route: 065
  2. MYCOPHENOLIC ACID [Concomitant]
     Active Substance: MYCOPHENOLIC ACID
     Indication: Immunosuppressant drug therapy
     Route: 048
  3. MYCOPHENOLIC ACID [Concomitant]
     Active Substance: MYCOPHENOLIC ACID
     Indication: Prophylaxis against transplant rejection
  4. SIROLIMUS [Concomitant]
     Active Substance: SIROLIMUS
     Indication: Immunosuppressant drug therapy
     Route: 065
  5. SIROLIMUS [Concomitant]
     Active Substance: SIROLIMUS
     Indication: Prophylaxis against transplant rejection

REACTIONS (1)
  - Off label use [Unknown]
